FAERS Safety Report 7821058-3 (Version None)
Quarter: 2011Q4

REPORT INFORMATION
  Report Type: 
  Country: None (occurrence: None)
  Receive Date: 20111018
  Receipt Date: 20110928
  Transmission Date: 20120403
  Serious: No
  Sender: FDA-Public Use
  Company Number: US-PFIZER INC-2011246520

PATIENT
  Sex: Female

DRUGS (3)
  1. LISINOPRIL [Suspect]
  2. NORVASC [Suspect]
  3. NIFEDIPINE [Suspect]

REACTIONS (1)
  - DRUG INEFFECTIVE [None]
